FAERS Safety Report 11089089 (Version 1)
Quarter: 2015Q2

REPORT INFORMATION
  Report Type: Report from Study
  Country: US (occurrence: US)
  Receive Date: 20150505
  Receipt Date: 20150505
  Transmission Date: 20150821
  Serious: Yes (Other)
  Sender: FDA-Public Use
  Company Number: US-AMGEN-USACT2015041605

PATIENT
  Age: 28 Year
  Sex: Female
  Weight: 65.31 kg

DRUGS (11)
  1. TRASTUZUMAB [Concomitant]
     Active Substance: TRASTUZUMAB
     Dosage: UNK
     Dates: start: 20121101
  2. CLONAZEPAM. [Concomitant]
     Active Substance: CLONAZEPAM
     Dosage: 0.5 MG, EVERY 12 HOURS AS NEEDED
     Route: 048
     Dates: start: 20131217, end: 20140725
  3. IODINE (131 I) [Concomitant]
     Active Substance: SODIUM IODIDE I-131
     Dosage: UNK
     Dates: start: 201406, end: 20141018
  4. PROMETHAZINE HYDROCHLORIDE. [Concomitant]
     Active Substance: PROMETHAZINE HYDROCHLORIDE
     Dosage: 25 MG, EVERY 6 HOURS
     Route: 048
     Dates: start: 20120627
  5. LEVOTHYROXINE SODIUM. [Concomitant]
     Active Substance: LEVOTHYROXINE SODIUM
     Dosage: 25 MUG, QD
     Route: 048
     Dates: start: 20141023
  6. HYDROCODONE BITARTRATE AND ACETAMINOPHEN [Concomitant]
     Active Substance: ACETAMINOPHEN\HYDROCODONE BITARTRATE
     Dosage: UNK
  7. LIDOCAINE W/PRILOCAINE [Concomitant]
     Dosage: UNK
     Dates: start: 20120416, end: 20130328
  8. CIPROFLOXACIN HYDROCHLORIDE. [Concomitant]
     Active Substance: CIPROFLOXACIN HYDROCHLORIDE
     Dosage: UNK
  9. DENOSUMAB [Suspect]
     Active Substance: DENOSUMAB
     Indication: BREAST CANCER
     Dosage: UNK
     Route: 065
     Dates: start: 20120510, end: 20140918
  10. TAMOXIFEN CITRATE. [Concomitant]
     Active Substance: TAMOXIFEN CITRATE
     Dosage: UNK
     Dates: start: 20121101
  11. CALCIUM +VIT D [Concomitant]
     Active Substance: CALCIUM\VITAMIN D
     Dosage: 1 TABLET (600:400 MG-UNIT) TWICE DAILY
     Route: 048
     Dates: start: 20120514

REACTIONS (1)
  - Pain in jaw [Recovered/Resolved]

NARRATIVE: CASE EVENT DATE: 20140904
